FAERS Safety Report 5668707-6 (Version None)
Quarter: 2008Q1

REPORT INFORMATION
  Report Type: 
  Country: None (occurrence: None)
  Receive Date: 20080317
  Receipt Date: 20080305
  Transmission Date: 20080703
  Serious: Yes (Other)
  Sender: FDA-Public Use
  Company Number: GB-RANBAXY-2008RR-13543

PATIENT

DRUGS (12)
  1. CO-AMOXICLAV 250/125 MG TABLETS [Suspect]
     Route: 065
  2. ENOXAPARIN SODIUM [Suspect]
     Dosage: 40 MG, BID
     Route: 065
  3. FUROSEMIDE TABLETS BP 40MG [Suspect]
     Dosage: 80 MG, UNK
     Route: 065
  4. NIFEDIPINE RPG LP 20MG COMPRIME A LIBERATION PROLONGEE [Suspect]
     Route: 065
  5. STEROID NOS [Suspect]
  6. PHENYLEPHRINE [Concomitant]
     Dosage: 20 UG, UNK
  7. OXYTOCIN [Concomitant]
     Dosage: 5 UNITS, UNK
     Route: 042
  8. DIAMORPHINE [Concomitant]
     Dosage: 2.5 MG, UNK
     Route: 008
  9. ALFENTANIL [Concomitant]
     Indication: DISCOMFORT
     Dosage: 200 UG, UNK
     Route: 042
  10. CAPTOPRIL [Concomitant]
  11. FUROSEMIDE TABLETS BP 40MG [Concomitant]
  12. BISOPROLOL 10MG TABLETS [Concomitant]

REACTIONS (17)
  - ASTHMA [None]
  - BLOOD PRESSURE DECREASED [None]
  - CARDIAC MURMUR [None]
  - CARDIOMEGALY [None]
  - DRUG EXPOSURE DURING PREGNANCY [None]
  - DYSPNOEA [None]
  - GENERALISED OEDEMA [None]
  - HEADACHE [None]
  - JUGULAR VEIN DISTENSION [None]
  - LEFT VENTRICULAR HYPERTROPHY [None]
  - MITRAL VALVE INCOMPETENCE [None]
  - OEDEMA PERIPHERAL [None]
  - ORTHOPNOEA [None]
  - PERIPARTUM CARDIOMYOPATHY [None]
  - PULMONARY OEDEMA [None]
  - RALES [None]
  - SINUS TACHYCARDIA [None]
